FAERS Safety Report 9044909 (Version 1)
Quarter: 2013Q1

REPORT INFORMATION
  Report Type: Report from Study
  Country: JP (occurrence: JP)
  Receive Date: 20130130
  Receipt Date: 20130130
  Transmission Date: 20140127
  Serious: Yes (Other)
  Sender: FDA-Public Use
  Company Number: JP-GLAXOSMITHKLINE-B0860348A

PATIENT
  Age: 41 None
  Sex: Male

DRUGS (1)
  1. SERETIDE [Suspect]
     Indication: ASTHMA
     Dosage: 500MCG TWICE PER DAY
     Route: 055
     Dates: start: 20081125, end: 20090205

REACTIONS (3)
  - Hyperthyroidism [Recovering/Resolving]
  - Influenza [Recovered/Resolved]
  - Tachycardia [Recovered/Resolved]
